FAERS Safety Report 6405680-7 (Version None)
Quarter: 2009Q4

REPORT INFORMATION
  Report Type: 
  Country: None (occurrence: None)
  Receive Date: 20091019
  Receipt Date: 20091014
  Transmission Date: 20100525
  Serious: Yes (Other)
  Sender: FDA-Public Use
  Company Number: B0598512A

PATIENT
  Age: 2 Year
  Sex: Female

DRUGS (1)
  1. AUGMENTIN '125' [Suspect]
     Dosage: 4.5ML PER DAY
     Route: 048
     Dates: start: 20091001, end: 20091001

REACTIONS (2)
  - DRUG INEFFECTIVE [None]
  - PNEUMONIA [None]
